FAERS Safety Report 18970041 (Version 2)
Quarter: 2021Q4

REPORT INFORMATION
  Report Type: Spontaneous
  Country: DE (occurrence: DE)
  Receive Date: 20210304
  Receipt Date: 20211109
  Transmission Date: 20220303
  Serious: Yes (Hospitalization, Other)
  Sender: FDA-Public Use
  Company Number: DE-NOVARTISPH-NVSC2021DE047241

PATIENT
  Age: 73 Year
  Sex: Male
  Weight: 96 kg

DRUGS (41)
  1. IMATINIB [Suspect]
     Active Substance: IMATINIB
     Indication: Acute lymphocytic leukaemia
     Dosage: UNK
     Route: 065
     Dates: start: 20180116
  2. IMATINIB [Suspect]
     Active Substance: IMATINIB
     Dosage: 200 MG, QD (2X200MG)
     Route: 065
     Dates: start: 20200221
  3. DEXAMETHASONE [Suspect]
     Active Substance: DEXAMETHASONE
     Indication: Acute lymphocytic leukaemia
     Dosage: 10 MG/M? (FREQUENCY DAY 1-5)
     Route: 065
     Dates: start: 20180111, end: 20180115
  4. DEXAMETHASONE [Suspect]
     Active Substance: DEXAMETHASONE
     Dosage: 21 MG, QD
     Route: 065
     Dates: start: 20211003, end: 20211007
  5. METHOTREXATE [Suspect]
     Active Substance: METHOTREXATE
     Indication: Acute lymphocytic leukaemia
     Dosage: 12 MG (ON DAY 01)
     Route: 037
     Dates: start: 20180111, end: 20180111
  6. METHOTREXATE [Suspect]
     Active Substance: METHOTREXATE
     Dosage: UNK
     Route: 065
     Dates: start: 20180226, end: 2018
  7. METHOTREXATE [Suspect]
     Active Substance: METHOTREXATE
     Dosage: UNK
     Route: 065
     Dates: start: 20181105, end: 2018
  8. METHOTREXATE [Suspect]
     Active Substance: METHOTREXATE
     Dosage: UNK
     Route: 065
  9. CYCLOPHOSPHAMIDE [Suspect]
     Active Substance: CYCLOPHOSPHAMIDE
     Indication: Acute lymphocytic leukaemia
     Dosage: 200 MG/M? (FREQUENCY DAY 3-5)
     Route: 065
     Dates: start: 20180113, end: 20180115
  10. CYCLOPHOSPHAMIDE [Suspect]
     Active Substance: CYCLOPHOSPHAMIDE
     Dosage: 430 MG, QD
     Route: 065
     Dates: start: 20211005, end: 20211007
  11. CYTARABINE [Suspect]
     Active Substance: CYTARABINE
     Indication: Acute lymphocytic leukaemia
     Dosage: UNK
     Route: 065
     Dates: start: 20180423, end: 2018
  12. CYTARABINE [Suspect]
     Active Substance: CYTARABINE
     Dosage: 500 MG/M2 (ON DAY 1,3,5)
     Route: 065
     Dates: start: 20190115, end: 20190119
  13. CYTARABINE [Suspect]
     Active Substance: CYTARABINE
     Dosage: 40 MG (FREQUENCY: DAY 14)
     Route: 037
     Dates: start: 20190128, end: 20190128
  14. CYTARABINE [Suspect]
     Active Substance: CYTARABINE
     Dosage: 500 MG/M2 (ON DAY 1,3,5)
     Route: 065
     Dates: start: 20190325, end: 20190329
  15. CYTARABINE [Suspect]
     Active Substance: CYTARABINE
     Dosage: 40 MG (FREQUENCY: DAY 14)
     Route: 037
     Dates: start: 20190407, end: 20190407
  16. ASPARAGINASE [Suspect]
     Active Substance: ASPARAGINASE
     Indication: Acute lymphocytic leukaemia
     Dosage: UNK
     Route: 065
     Dates: start: 20180226, end: 2018
  17. ASPARAGINASE [Suspect]
     Active Substance: ASPARAGINASE
     Dosage: UNK
     Route: 065
     Dates: start: 20181105, end: 2018
  18. PONATINIB [Suspect]
     Active Substance: PONATINIB
     Indication: Acute lymphocytic leukaemia
     Dosage: 30 MG
     Route: 065
     Dates: start: 20200609
  19. PONATINIB [Suspect]
     Active Substance: PONATINIB
     Dosage: 45 MG
     Route: 065
  20. INOTUZUMAB OZOGAMICIN [Suspect]
     Active Substance: INOTUZUMAB OZOGAMICIN
     Indication: Acute lymphocytic leukaemia
     Dosage: UNK
     Route: 065
     Dates: start: 20210329, end: 202107
  21. BLINATUMOMAB [Suspect]
     Active Substance: BLINATUMOMAB
     Indication: Acute lymphocytic leukaemia
     Dosage: UNK (SACHET)
     Route: 065
     Dates: start: 20210822, end: 2021
  22. BLINATUMOMAB [Suspect]
     Active Substance: BLINATUMOMAB
     Dosage: 28 UG (DAYS 1-3)
     Route: 065
     Dates: start: 20211008, end: 20211010
  23. BLINATUMOMAB [Suspect]
     Active Substance: BLINATUMOMAB
     Dosage: 9 UG (DAYS 4-7)
     Route: 065
     Dates: start: 20211011, end: 20211014
  24. BLINATUMOMAB [Suspect]
     Active Substance: BLINATUMOMAB
     Dosage: 28 MG (DAYS 8-21)
     Route: 065
     Dates: start: 20211015
  25. ALDACTONE [Concomitant]
     Active Substance: SPIRONOLACTONE
     Indication: Product used for unknown indication
     Dosage: 1 DF, QD
     Route: 065
  26. ALLOPURINOL [Concomitant]
     Active Substance: ALLOPURINOL
     Indication: Product used for unknown indication
     Dosage: 1 DF, QD
     Route: 065
  27. LACTULOSE [Concomitant]
     Active Substance: LACTULOSE
     Indication: Product used for unknown indication
     Dosage: 1 ML, TID (667 G/L)
     Route: 065
  28. BISOPROLOL [Concomitant]
     Active Substance: BISOPROLOL
     Indication: Product used for unknown indication
     Dosage: 1 DF, QD
     Route: 065
  29. ICLUSIG [Concomitant]
     Active Substance: PONATINIB
     Indication: Product used for unknown indication
     Dosage: 1 DF, QD
     Route: 065
  30. MOVICOL [Concomitant]
     Active Substance: POLYETHYLENE GLYCOL 3350\POTASSIUM CHLORIDE\SODIUM BICARBONATE\SODIUM CHLORIDE
     Indication: Product used for unknown indication
     Dosage: 1 DF, TID (POWDER FOR PREPARATION FOR ORAL USE)
     Route: 065
  31. MOVICOL [Concomitant]
     Active Substance: POLYETHYLENE GLYCOL 3350\POTASSIUM CHLORIDE\SODIUM BICARBONATE\SODIUM CHLORIDE
     Dosage: UNK (1 SACHET AS NEEDED)
     Route: 065
  32. METFORMIN HYDROCHLORIDE [Concomitant]
     Active Substance: METFORMIN HYDROCHLORIDE
     Indication: Product used for unknown indication
     Dosage: 1 DF, BID
     Route: 048
  33. PANTOPRAZOLE SODIUM [Concomitant]
     Active Substance: PANTOPRAZOLE SODIUM
     Indication: Product used for unknown indication
     Dosage: 1 DF, QD
     Route: 065
  34. SIMVASTATIN [Concomitant]
     Active Substance: SIMVASTATIN
     Indication: Product used for unknown indication
     Dosage: 1 DF, QD
     Route: 065
  35. TORSEMIDE [Concomitant]
     Active Substance: TORSEMIDE
     Indication: Product used for unknown indication
     Dosage: 1 DF, QD
     Route: 065
  36. TORSEMIDE [Concomitant]
     Active Substance: TORSEMIDE
     Dosage: 5 MG, QD
     Route: 065
  37. VALSARTAN [Concomitant]
     Active Substance: VALSARTAN
     Indication: Product used for unknown indication
     Dosage: 1 DF, QD
     Route: 065
  38. FOLIC ACID [Concomitant]
     Active Substance: FOLIC ACID
     Indication: Product used for unknown indication
     Dosage: UNK (1-0-0-0)
     Route: 065
  39. MIRTAZAPIN 1 A PHARMA [Concomitant]
     Indication: Product used for unknown indication
     Dosage: 15 MG, QD
     Route: 065
  40. SPIRONOLACTONE [Concomitant]
     Active Substance: SPIRONOLACTONE
     Indication: Product used for unknown indication
     Dosage: 50 MG, QD
     Route: 065
  41. INSULIN GLARGINE [Concomitant]
     Active Substance: INSULIN GLARGINE
     Indication: Diabetes mellitus
     Dosage: UNK
     Route: 058
     Dates: start: 202110, end: 2021

REACTIONS (43)
  - Pyrexia [Recovering/Resolving]
  - Acute lymphocytic leukaemia [Unknown]
  - Malignant neoplasm progression [Unknown]
  - Herpes simplex [Unknown]
  - Enterococcal infection [Recovered/Resolved with Sequelae]
  - White blood cell count increased [Unknown]
  - Neutropenia [Unknown]
  - Platelet count decreased [Unknown]
  - Acute lymphocytic leukaemia recurrent [Unknown]
  - Escherichia urinary tract infection [Unknown]
  - Cytokine release syndrome [Unknown]
  - Arteriosclerosis coronary artery [Unknown]
  - Pancreatitis chronic [Unknown]
  - Febrile infection [Unknown]
  - Costal cartilage fracture [Unknown]
  - Euphoric mood [Unknown]
  - Weight decreased [Unknown]
  - Blast cells present [Unknown]
  - C-reactive protein increased [Unknown]
  - Blood bilirubin increased [Unknown]
  - Serum ferritin increased [Unknown]
  - Gamma-glutamyltransferase increased [Unknown]
  - Blood lactate dehydrogenase increased [Unknown]
  - Procalcitonin increased [Unknown]
  - Red cell distribution width increased [Unknown]
  - Metamyelocyte count increased [Unknown]
  - Myelocyte count increased [Unknown]
  - Neutrophil count decreased [Unknown]
  - Monocyte count decreased [Unknown]
  - Prothrombin time prolonged [Unknown]
  - Activated partial thromboplastin time prolonged [Unknown]
  - Blood calcium increased [Unknown]
  - Blood chloride increased [Unknown]
  - Blood glucose increased [Unknown]
  - Lactose intolerance [Unknown]
  - Lymphocyte count decreased [Unknown]
  - Diaphragmatic disorder [Unknown]
  - Haemangioma [Unknown]
  - Lymphadenopathy [Unknown]
  - Hepatic calcification [Unknown]
  - Adrenomegaly [Unknown]
  - Gastritis [Unknown]
  - Hypotension [Unknown]

NARRATIVE: CASE EVENT DATE: 20180101
